FAERS Safety Report 22961783 (Version 4)
Quarter: 2023Q4

REPORT INFORMATION
  Report Type: Report from Study
  Country: BR (occurrence: BR)
  Receive Date: 20230920
  Receipt Date: 20231215
  Transmission Date: 20240110
  Serious: Yes (Hospitalization, Other)
  Sender: FDA-Public Use
  Company Number: BR-ELI_LILLY_AND_COMPANY-BR202309008162

PATIENT
  Age: 58 Year
  Sex: Female

DRUGS (5)
  1. ABEMACICLIB [Suspect]
     Active Substance: ABEMACICLIB
     Indication: Breast cancer metastatic
     Dosage: 150 MG, BID
     Route: 048
     Dates: start: 20210913
  2. ABEMACICLIB [Suspect]
     Active Substance: ABEMACICLIB
     Dosage: 100 MG, BID (USING 2 TABLETS OF 50 MG)
     Route: 048
     Dates: start: 202205
  3. ABEMACICLIB [Suspect]
     Active Substance: ABEMACICLIB
     Dosage: 200 MG, DAILY (ONE TIME A DAY)
     Route: 065
  4. ABEMACICLIB [Suspect]
     Active Substance: ABEMACICLIB
     Dosage: 100 MG, BID (2 TABLETS OF 50 MG EACH)
     Route: 048
     Dates: end: 20231204
  5. FULVESTRANT [Concomitant]
     Active Substance: FULVESTRANT
     Indication: Product used for unknown indication

REACTIONS (9)
  - Renal impairment [Unknown]
  - Diarrhoea [Recovering/Resolving]
  - Malaise [Unknown]
  - Motion sickness [Unknown]
  - Depression [Unknown]
  - Vomiting [Unknown]
  - Nausea [Unknown]
  - White blood cell count decreased [Unknown]
  - Product prescribing error [Unknown]

NARRATIVE: CASE EVENT DATE: 20231204
